FAERS Safety Report 14236990 (Version 1)
Quarter: 2017Q4

REPORT INFORMATION
  Report Type: Spontaneous
  Country: IN (occurrence: IN)
  Receive Date: 20171129
  Receipt Date: 20171129
  Transmission Date: 20180321
  Serious: Yes (Life-Threatening, Hospitalization, Other)
  Sender: FDA-Public Use
  Company Number: IN-ELI_LILLY_AND_COMPANY-IN200704000428

PATIENT
  Age: 28 Year
  Sex: Male

DRUGS (4)
  1. OLANZAPINE. [Suspect]
     Active Substance: OLANZAPINE
     Indication: BIPOLAR DISORDER
     Dosage: 10 MG, DAILY (1/D)
     Route: 048
  2. LITHIUM /00033711/ [Interacting]
     Active Substance: LITHIUM ASPARTATE
     Indication: BIPOLAR DISORDER
     Dosage: 800 MG, DAILY
     Route: 048
  3. HALOPERIDOL. [Interacting]
     Active Substance: HALOPERIDOL
     Indication: AGITATION
     Dosage: UNK UNK, UNKNOWN
     Route: 048
  4. HALOPERIDOL. [Interacting]
     Active Substance: HALOPERIDOL
     Indication: BIPOLAR DISORDER
     Dosage: UNK, UNKNOWN
     Route: 042

REACTIONS (7)
  - Neuroleptic malignant syndrome [Recovered/Resolved with Sequelae]
  - Drug interaction [Recovering/Resolving]
  - Tremor [Recovering/Resolving]
  - Neurotoxicity [Recovering/Resolving]
  - Catatonia [Recovering/Resolving]
  - Cerebellar atrophy [Unknown]
  - Renal failure [Unknown]

NARRATIVE: CASE EVENT DATE: 2005
